FAERS Safety Report 25155066 (Version 1)
Quarter: 2025Q2

REPORT INFORMATION
  Report Type: Spontaneous
  Country: GB (occurrence: GB)
  Receive Date: 20250403
  Receipt Date: 20250403
  Transmission Date: 20250716
  Serious: Yes (Hospitalization, Disabling)
  Sender: MYLAN
  Company Number: GB-MYLANLABS-2025M1028787

PATIENT
  Age: 55 Year
  Sex: Male

DRUGS (24)
  1. SILDENAFIL [Suspect]
     Active Substance: SILDENAFIL
     Indication: Vasculitis
  2. SILDENAFIL [Suspect]
     Active Substance: SILDENAFIL
     Indication: Angiopathy
     Route: 065
  3. SILDENAFIL [Suspect]
     Active Substance: SILDENAFIL
     Route: 065
  4. SILDENAFIL [Suspect]
     Active Substance: SILDENAFIL
  5. CLOPIDOGREL [Suspect]
     Active Substance: CLOPIDOGREL BISULFATE
     Indication: Vasculitis
  6. CLOPIDOGREL [Suspect]
     Active Substance: CLOPIDOGREL BISULFATE
     Indication: Angiopathy
     Route: 065
  7. CLOPIDOGREL [Suspect]
     Active Substance: CLOPIDOGREL BISULFATE
     Route: 065
  8. CLOPIDOGREL [Suspect]
     Active Substance: CLOPIDOGREL BISULFATE
  9. ILOPROST [Suspect]
     Active Substance: ILOPROST
     Indication: Vasculitis
  10. ILOPROST [Suspect]
     Active Substance: ILOPROST
     Indication: Angiopathy
  11. ILOPROST [Suspect]
     Active Substance: ILOPROST
     Route: 042
  12. ILOPROST [Suspect]
     Active Substance: ILOPROST
     Route: 042
  13. ILOPROST [Suspect]
     Active Substance: ILOPROST
  14. ILOPROST [Suspect]
     Active Substance: ILOPROST
  15. ILOPROST [Suspect]
     Active Substance: ILOPROST
     Route: 042
  16. ILOPROST [Suspect]
     Active Substance: ILOPROST
     Route: 042
  17. PREDNISOLONE [Suspect]
     Active Substance: PREDNISOLONE
     Indication: Vasculitis
  18. PREDNISOLONE [Suspect]
     Active Substance: PREDNISOLONE
     Indication: Angiopathy
     Route: 048
  19. PREDNISOLONE [Suspect]
     Active Substance: PREDNISOLONE
     Route: 048
  20. PREDNISOLONE [Suspect]
     Active Substance: PREDNISOLONE
  21. METHOTREXATE [Concomitant]
     Active Substance: METHOTREXATE
     Indication: Rheumatoid arthritis
  22. METHOTREXATE [Concomitant]
     Active Substance: METHOTREXATE
     Route: 065
  23. METHOTREXATE [Concomitant]
     Active Substance: METHOTREXATE
     Route: 065
  24. METHOTREXATE [Concomitant]
     Active Substance: METHOTREXATE

REACTIONS (2)
  - Drug ineffective for unapproved indication [Unknown]
  - Off label use [Unknown]
